FAERS Safety Report 25754579 (Version 1)
Quarter: 2025Q3

REPORT INFORMATION
  Report Type: Spontaneous
  Country: EU (occurrence: EU)
  Receive Date: 20250903
  Receipt Date: 20250903
  Transmission Date: 20251020
  Serious: No
  Sender: ALKEM
  Company Number: None

PATIENT
  Age: 72 Year
  Sex: Male

DRUGS (5)
  1. GABAPENTIN [Suspect]
     Active Substance: GABAPENTIN
     Indication: Chronic kidney disease-associated pruritus
     Route: 065
  2. PREGABALIN [Suspect]
     Active Substance: PREGABALIN
     Indication: Chronic kidney disease-associated pruritus
     Route: 065
  3. CLOBETASOL PROPIONATE [Suspect]
     Active Substance: CLOBETASOL PROPIONATE
     Indication: Chronic kidney disease-associated pruritus
     Route: 065
  4. DIFELIKEFALIN [Suspect]
     Active Substance: DIFELIKEFALIN
     Indication: Chronic kidney disease-associated pruritus
     Route: 065
  5. DIFELIKEFALIN [Suspect]
     Active Substance: DIFELIKEFALIN
     Route: 065

REACTIONS (3)
  - Confusional state [Unknown]
  - Fatigue [Unknown]
  - Off label use [Unknown]

NARRATIVE: CASE EVENT DATE: 20240201
